FAERS Safety Report 19745545 (Version 3)
Quarter: 2021Q4

REPORT INFORMATION
  Report Type: Spontaneous
  Country: IN (occurrence: IN)
  Receive Date: 20210825
  Receipt Date: 20211112
  Transmission Date: 20220303
  Serious: Yes (Death, Other)
  Sender: FDA-Public Use
  Company Number: IN-PFIZER INC-202101042721

PATIENT
  Age: 59 Year
  Sex: Female
  Weight: 54 kg

DRUGS (4)
  1. PALBOCICLIB [Suspect]
     Active Substance: PALBOCICLIB
     Dosage: 125 MG, OD
     Route: 048
     Dates: start: 20200926, end: 20211102
  2. FULVESTRANT [Concomitant]
     Active Substance: FULVESTRANT
     Dosage: 250 MG (X 2 DOSES ONE DOSE IN EACH BUTTOCK)
     Route: 030
  3. ZINCOVIT [ASCORBIC ACID;RETINOL;TOCOPHEROL;ZINC] [Concomitant]
     Dosage: X-1-X
     Route: 048
  4. PAN D [CAMPHOR;GLYCEROL;MENTHOL;ZINC OXIDE] [Concomitant]
     Dosage: 1-X-X
     Route: 048

REACTIONS (6)
  - Death [Fatal]
  - Blood calcium decreased [Unknown]
  - Off label use [Unknown]
  - Decreased appetite [Unknown]
  - Early satiety [Unknown]
  - Neoplasm progression [Unknown]

NARRATIVE: CASE EVENT DATE: 20211102
